FAERS Safety Report 7422818-3 (Version None)
Quarter: 2011Q2

REPORT INFORMATION
  Report Type: 
  Country: None (occurrence: None)
  Receive Date: 20110414
  Receipt Date: 20110414
  Transmission Date: 20111010
  Serious: No
  Sender: FDA-Public Use
  Company Number: None

PATIENT
  Age: 64 Year
  Sex: Male
  Weight: 76.2 kg

DRUGS (2)
  1. TRAZODONE [Suspect]
     Dosage: 50 MG HS PO
     Route: 048
     Dates: start: 20110107, end: 20110118
  2. VENLAFAXINE [Suspect]
     Dosage: 375 MG EVERY DAY PO
     Dates: start: 20101022, end: 20110118

REACTIONS (2)
  - CONFUSIONAL STATE [None]
  - TREMOR [None]
